FAERS Safety Report 14511547 (Version 1)
Quarter: 2018Q1

REPORT INFORMATION
  Report Type: Report from Study
  Country: US (occurrence: US)
  Receive Date: 20180209
  Receipt Date: 20180209
  Transmission Date: 20180509
  Serious: Yes (Hospitalization, Other)
  Sender: FDA-Public Use
  Company Number: US-SA-2018SA026172

PATIENT
  Age: 68 Year
  Sex: Female

DRUGS (3)
  1. LOVENOX [Suspect]
     Active Substance: ENOXAPARIN SODIUM
     Indication: PROPHYLAXIS
     Route: 065
     Dates: start: 201709, end: 201709
  2. HUMIRA [Suspect]
     Active Substance: ADALIMUMAB
     Indication: RHEUMATOID ARTHRITIS
     Dosage: SOLUTION FOR INJECTION IN PRE-FILLED PEN
     Route: 058
     Dates: start: 20150520
  3. XARELTO [Suspect]
     Active Substance: RIVAROXABAN
     Route: 065

REACTIONS (15)
  - Procedural pain [Unknown]
  - Arterial disorder [Unknown]
  - Pulmonary thrombosis [Recovered/Resolved]
  - Pruritus [Not Recovered/Not Resolved]
  - Venous stenosis [Unknown]
  - Cough [Unknown]
  - Contusion [Recovered/Resolved]
  - Urticaria [Recovered/Resolved]
  - Chest pain [Unknown]
  - Contraindicated product administered [Unknown]
  - Skin cancer [Recovering/Resolving]
  - Loss of consciousness [Recovered/Resolved]
  - Hypophagia [Not Recovered/Not Resolved]
  - Thrombosis [Recovered/Resolved]
  - Peripheral venous disease [Not Recovered/Not Resolved]

NARRATIVE: CASE EVENT DATE: 2016
